FAERS Safety Report 5834095-5 (Version None)
Quarter: 2008Q3

REPORT INFORMATION
  Report Type: 
  Country: None (occurrence: None)
  Receive Date: 20080805
  Receipt Date: 20080728
  Transmission Date: 20090109
  Serious: Yes (Other)
  Sender: FDA-Public Use
  Company Number: US-TEVA-175286USA

PATIENT
  Age: 58 Year
  Sex: Male

DRUGS (2)
  1. IDARUBICIN HCL, INJECTION, 20MG/ML, 10 MG/ML, 5MG/ML [Suspect]
     Indication: ACUTE MYELOID LEUKAEMIA
  2. CYTARABINE [Suspect]
     Indication: MYELOID LEUKAEMIA

REACTIONS (2)
  - EPSTEIN-BARR VIRUS INFECTION [None]
  - GUILLAIN-BARRE SYNDROME [None]
